FAERS Safety Report 8375251-4 (Version None)
Quarter: 2012Q2

REPORT INFORMATION
  Report Type: 
  Country: None (occurrence: None)
  Receive Date: 20120522
  Receipt Date: 20120514
  Transmission Date: 20120825
  Serious: Yes (Hospitalization)
  Sender: FDA-Public Use
  Company Number: US-BIOGENIDEC-2012BI014586

PATIENT
  Age: 43 Year
  Sex: Female

DRUGS (2)
  1. TYSABRI [Suspect]
     Route: 042
     Dates: start: 20111201
  2. TYSABRI [Suspect]
     Indication: MULTIPLE SCLEROSIS
     Route: 042
     Dates: start: 20110105, end: 20110105

REACTIONS (6)
  - MUSCLE ATROPHY [None]
  - OEDEMA PERIPHERAL [None]
  - JOINT SWELLING [None]
  - SENSATION OF HEAVINESS [None]
  - DYSPNOEA [None]
  - DYSGRAPHIA [None]
